FAERS Safety Report 6823619-7 (Version None)
Quarter: 2010Q3

REPORT INFORMATION
  Report Type: 
  Country: None (occurrence: None)
  Receive Date: 20100708
  Receipt Date: 20060721
  Transmission Date: 20110219
  Serious: No
  Sender: FDA-Public Use
  Company Number: US-PFIZER INC-2006092098

PATIENT
  Sex: Female
  Weight: 58.97 kg

DRUGS (4)
  1. CHANTIX [Suspect]
     Indication: SMOKING CESSATION THERAPY
     Route: 048
     Dates: start: 20060714
  2. TRAZODONE [Concomitant]
     Route: 065
  3. EFFEXOR [Concomitant]
     Route: 065
  4. LORTAB [Concomitant]
     Route: 065

REACTIONS (5)
  - ERYTHEMA [None]
  - RASH GENERALISED [None]
  - SCAR [None]
  - SCRATCH [None]
  - URTICARIA [None]
